FAERS Safety Report 13884472 (Version 1)
Quarter: 2017Q3

REPORT INFORMATION
  Report Type: Spontaneous
  Country: FR (occurrence: FR)
  Receive Date: 20170821
  Receipt Date: 20170821
  Transmission Date: 20171127
  Serious: Yes (Life-Threatening)
  Sender: FDA-Public Use
  Company Number: FR-ROCHE-1977912

PATIENT
  Age: 71 Year
  Sex: Female

DRUGS (5)
  1. AMOXICILLINE [Suspect]
     Active Substance: AMOXICILLIN
     Indication: DYSPNOEA
     Route: 048
     Dates: start: 20170426, end: 20170501
  2. ROCEPHINE [Suspect]
     Active Substance: CEFTRIAXONE SODIUM
     Indication: DYSPNOEA
     Route: 065
     Dates: start: 201705, end: 201705
  3. PYOSTACINE [Suspect]
     Active Substance: PRISTINAMYCIN
     Indication: DYSPNOEA
     Route: 048
     Dates: start: 201705, end: 201705
  4. ORELOX [Suspect]
     Active Substance: CEFPODOXIME
     Indication: DYSPNOEA
     Route: 048
     Dates: start: 201705, end: 201705
  5. MODOPAR [Concomitant]
     Active Substance: BENSERAZIDE HYDROCHLORIDE\LEVODOPA
     Route: 065
     Dates: start: 201603

REACTIONS (1)
  - Eosinophilic pneumonia [Recovering/Resolving]

NARRATIVE: CASE EVENT DATE: 201705
